FAERS Safety Report 6536499-4 (Version None)
Quarter: 2010Q1

REPORT INFORMATION
  Report Type: 
  Country: None (occurrence: None)
  Receive Date: 20100106
  Receipt Date: 20091228
  Transmission Date: 20100710
  Serious: No
  Sender: FDA-Public Use
  Company Number: 20107885

PATIENT
  Age: 34 Year

DRUGS (1)
  1. LIORESAL [Suspect]
     Indication: MUSCLE SPASTICITY
     Dosage: UNK MCG, DAILY, INTRATHECAL
     Route: 037

REACTIONS (6)
  - DRUG DISPENSING ERROR [None]
  - FEELING ABNORMAL [None]
  - FEELING DRUNK [None]
  - HALLUCINATION [None]
  - LETHARGY [None]
  - OVERDOSE [None]
